FAERS Safety Report 17006304 (Version 1)
Quarter: 2019Q4

REPORT INFORMATION
  Report Type: Spontaneous
  Country: NL (occurrence: DE)
  Receive Date: 20191107
  Receipt Date: 20191107
  Transmission Date: 20200122
  Serious: Yes (Hospitalization, Disabling, Other)
  Sender: FDA-Public Use
  Company Number: DE-FRESENIUS KABI-FK201912162

PATIENT
  Sex: Female
  Weight: 120 kg

DRUGS (16)
  1. HYDROCHLOROTHIAZIDE/VALSARTAN [Suspect]
     Active Substance: HYDROCHLOROTHIAZIDE\VALSARTAN
     Dosage: 1 DF, QD (IN THE MORNINGS)
     Route: 065
  2. VALSARTAN. [Suspect]
     Active Substance: VALSARTAN
     Indication: PRODUCT USED FOR UNKNOWN INDICATION
     Dosage: 1 DF, BID
     Route: 065
  3. TAZOBACTAM [Suspect]
     Active Substance: TAZOBACTAM
     Indication: PRODUCT USED FOR UNKNOWN INDICATION
     Dosage: UNK
     Route: 065
     Dates: start: 20161128, end: 20161214
  4. VALSARTAN. [Concomitant]
     Active Substance: VALSARTAN
     Indication: PRODUCT USED FOR UNKNOWN INDICATION
     Dosage: 1 DF, QD (IN THE EVENING)
     Route: 065
     Dates: start: 20170331
  5. ANIDULAFUNGIN [Suspect]
     Active Substance: ANIDULAFUNGIN
     Indication: PRODUCT USED FOR UNKNOWN INDICATION
     Dosage: 100 MG, QD
     Route: 065
  6. HYDROCHLOROTHIAZIDE/VALSARTAN [Suspect]
     Active Substance: HYDROCHLOROTHIAZIDE\VALSARTAN
     Indication: HYPERTENSION
     Dosage: 1 DF, QD (IN THE MORNINGS)
     Route: 065
     Dates: start: 201412
  7. VALSARTAN. [Suspect]
     Active Substance: VALSARTAN
     Indication: HYPERTENSION
  8. VALSARTAN. [Suspect]
     Active Substance: VALSARTAN
     Indication: HYPERTENSION
     Dosage: 0.5 DF, QD (IN THE EVENINGS)
     Route: 065
  9. NEBIVOLOL. [Concomitant]
     Active Substance: NEBIVOLOL
     Indication: PRODUCT USED FOR UNKNOWN INDICATION
     Dosage: 5 MG, QD (IN THE EVENINGS)
     Route: 065
     Dates: start: 2012
  10. HYDROCHLOROTHIAZIDE/VALSARTAN [Concomitant]
     Indication: PRODUCT USED FOR UNKNOWN INDICATION
     Dosage: 1 DF, QD (IN THE MORNINGS)
     Route: 065
     Dates: start: 20170331
  11. AMLODIPINE [Concomitant]
     Active Substance: AMLODIPINE BESYLATE
     Indication: PRODUCT USED FOR UNKNOWN INDICATION
     Dosage: 5 MG, BID (IN THE MORNING AND EVENING)
     Route: 065
     Dates: start: 2005
  12. HYDROCHLOROTHIAZIDE/VALSARTAN [Suspect]
     Active Substance: HYDROCHLOROTHIAZIDE\VALSARTAN
     Dosage: 1 DF, QD (IN THE MORNINGS)
     Route: 065
     Dates: start: 2005, end: 20180912
  13. ACETYLSALICYLIC ACID [Concomitant]
     Active Substance: ASPIRIN
     Indication: PRODUCT USED FOR UNKNOWN INDICATION
     Dosage: UNK
     Route: 065
     Dates: start: 2009, end: 2011
  14. OXYCODONE HYDROCHLORIDE/NALOXONE HYDROCHLORIDE [Concomitant]
     Indication: PRODUCT USED FOR UNKNOWN INDICATION
     Dosage: UNK, BID (10/5 MG) (1-0-1)
     Route: 065
  15. VANCOMYCIN (MANUFACTURER UNKNOWN) [Suspect]
     Active Substance: VANCOMYCIN
     Indication: PRODUCT USED FOR UNKNOWN INDICATION
     Dosage: 1 G, TID (1-1-1)
     Route: 065
     Dates: start: 20161209, end: 20161214
  16. VALSARTAN. [Concomitant]
     Active Substance: VALSARTAN
     Indication: PRODUCT USED FOR UNKNOWN INDICATION
     Route: 065

REACTIONS (52)
  - Pulmonary embolism [Unknown]
  - Renal cyst [Unknown]
  - Haematocrit decreased [Unknown]
  - Hepatic cyst [Unknown]
  - Blood albumin decreased [Unknown]
  - C-reactive protein increased [Unknown]
  - Iron deficiency anaemia [Unknown]
  - Atelectasis [Unknown]
  - Aspartate aminotransferase increased [Unknown]
  - Peritonitis [Unknown]
  - General physical health deterioration [Unknown]
  - Abdominal wound dehiscence [Unknown]
  - Scar pain [Unknown]
  - Blood urea decreased [Unknown]
  - Alanine aminotransferase increased [Unknown]
  - Blood lactate dehydrogenase increased [Unknown]
  - Platelet count increased [Unknown]
  - Leukopenia [Unknown]
  - Weight decreased [Unknown]
  - Thrombocytopenia [Unknown]
  - Prothrombin time prolonged [Unknown]
  - Nocturia [Unknown]
  - Blood glucose increased [Unknown]
  - Blood calcium decreased [Unknown]
  - Headache [Unknown]
  - Hypokalaemia [Unknown]
  - Procedural pain [Unknown]
  - Abdominal pain [Unknown]
  - Perforation [Unknown]
  - Acute kidney injury [Unknown]
  - Vitamin B12 decreased [Unknown]
  - Polyneuropathy [Unknown]
  - Hypochromic anaemia [Unknown]
  - Diverticulum intestinal [Unknown]
  - Blood creatinine decreased [Unknown]
  - Ovarian cancer [Recovered/Resolved with Sequelae]
  - Haemoglobin decreased [Unknown]
  - Spinal disorder [Unknown]
  - Blood potassium decreased [Unknown]
  - Red blood cell count decreased [Unknown]
  - Fatigue [Unknown]
  - Hydronephrosis [Unknown]
  - Dyspnoea exertional [Unknown]
  - Blood sodium increased [Unknown]
  - Dysuria [Unknown]
  - Red cell distribution width increased [Unknown]
  - Malignant peritoneal neoplasm [Unknown]
  - Deep vein thrombosis [Unknown]
  - Mean cell volume decreased [Unknown]
  - Pain in extremity [Unknown]
  - Mean cell haemoglobin decreased [Unknown]
  - White blood cell count increased [Unknown]

NARRATIVE: CASE EVENT DATE: 2007
